FAERS Safety Report 25180441 (Version 1)
Quarter: 2025Q2

REPORT INFORMATION
  Report Type: Report from Study
  Country: UA (occurrence: UA)
  Receive Date: 20250409
  Receipt Date: 20250409
  Transmission Date: 20250717
  Serious: Yes (Death, Other)
  Sender: PFIZER
  Company Number: UA-TAKEDA-2025TUS028234

PATIENT
  Age: 32 Year
  Sex: Female

DRUGS (1)
  1. ADCETRIS [Suspect]
     Active Substance: BRENTUXIMAB VEDOTIN
     Indication: Hodgkin^s disease refractory
     Dosage: 200 MILLIGRAM, Q3WEEKS
     Route: 065
     Dates: start: 20241114

REACTIONS (2)
  - Death [Fatal]
  - Inflammation [Unknown]
